FAERS Safety Report 9099285 (Version 1)
Quarter: 2013Q1

REPORT INFORMATION
  Report Type: Spontaneous
  Country: FR (occurrence: FR)
  Receive Date: 20130214
  Receipt Date: 20130214
  Transmission Date: 20140127
  Serious: Yes (Other)
  Sender: FDA-Public Use
  Company Number: FR-UCBSA-070072

PATIENT
  Age: 80 Year
  Sex: Female

DRUGS (8)
  1. CIMZIA [Suspect]
     Indication: RHEUMATOID ARTHRITIS
     Route: 058
     Dates: start: 201201, end: 201206
  2. CELECTOL [Concomitant]
     Indication: MYOCARDIAL ISCHAEMIA
     Dates: start: 2006
  3. PLAVIX [Concomitant]
     Indication: MYOCARDIAL ISCHAEMIA
     Dates: start: 2006
  4. KARDEGIC [Concomitant]
     Indication: MYOCARDIAL ISCHAEMIA
     Dates: start: 2006
  5. TRIATEC [Concomitant]
     Indication: MYOCARDIAL ISCHAEMIA
     Dates: start: 2006
  6. VASTEN [Concomitant]
     Indication: MYOCARDIAL ISCHAEMIA
     Dates: start: 2006
  7. MOPRAL [Concomitant]
     Dates: start: 2006
  8. DOLIPRANE [Concomitant]
     Dates: start: 2006

REACTIONS (2)
  - Emphysema [Unknown]
  - Cough [Not Recovered/Not Resolved]
